FAERS Safety Report 8075456-6 (Version None)
Quarter: 2012Q1

REPORT INFORMATION
  Report Type: 
  Country: None (occurrence: None)
  Receive Date: 20120120
  Receipt Date: 20120109
  Transmission Date: 20120608
  Serious: Yes (Hospitalization)
  Sender: FDA-Public Use
  Company Number: 2012MA000587

PATIENT
  Age: 80 Year
  Sex: Female

DRUGS (5)
  1. ANTI-DEPRESSANT [Concomitant]
  2. PREDNISONE TAB [Concomitant]
  3. VENLAFAXINE HCL [Suspect]
     Indication: DECREASED APPETITE
     Dosage: 225 MG;QD
  4. VENLAFAXINE HCL [Suspect]
     Indication: DEPRESSION
     Dosage: 225 MG;QD
  5. VENLAFAXINE HCL [Suspect]
     Indication: INSOMNIA
     Dosage: 225 MG;QD

REACTIONS (6)
  - INSOMNIA [None]
  - EOSINOPHILIC PNEUMONIA ACUTE [None]
  - PANCREATITIS ACUTE [None]
  - DECREASED APPETITE [None]
  - FEELING OF DESPAIR [None]
  - RESPIRATORY DISTRESS [None]
